FAERS Safety Report 9207021 (Version 3)
Quarter: 2013Q2

REPORT INFORMATION
  Report Type: Report from Study
  Country: DE (occurrence: DE)
  Receive Date: 20130403
  Receipt Date: 20130506
  Transmission Date: 20140414
  Serious: Yes (Hospitalization)
  Sender: FDA-Public Use
  Company Number: DE-UCBSA-081723

PATIENT
  Age: 38 Year
  Sex: Male

DRUGS (6)
  1. VIMPAT [Suspect]
     Indication: EPILEPSY
     Dosage: DOSE: 50 MG DAILY
     Dates: start: 20090218, end: 20090421
  2. LEVETIRACETAM [Concomitant]
     Indication: EPILEPSY
     Dosage: DOSE: 3500 MG DAILY
  3. LAMOTRIGINE [Concomitant]
     Indication: EPILEPSY
     Dosage: DOSE: 600 MG/DAY
     Dates: end: 2009
  4. LAMOTRIGINE [Concomitant]
     Indication: EPILEPSY
     Dosage: DOSE: 800 MG/DAY
     Dates: start: 2009
  5. CLOBAZAM [Concomitant]
     Indication: EPILEPSY
     Dosage: DOSE: 15 MG/DAY
     Dates: end: 2009
  6. CLOBAZAM [Concomitant]
     Indication: EPILEPSY
     Dosage: DOSE: 20 MG/DAY
     Dates: start: 2009

REACTIONS (1)
  - Grand mal convulsion [Unknown]
